FAERS Safety Report 12105711 (Version 4)
Quarter: 2016Q2

REPORT INFORMATION
  Report Type: Spontaneous
  Country: US (occurrence: US)
  Receive Date: 20160223
  Receipt Date: 20160606
  Transmission Date: 20160815
  Serious: No
  Sender: FDA-Public Use
  Company Number: US-PFIZER INC-2016108188

PATIENT
  Age: 93 Year
  Sex: Female

DRUGS (10)
  1. CARVEDILOL. [Concomitant]
     Active Substance: CARVEDILOL
     Indication: HYPERTENSION
     Dosage: 6.25 MG, UNK (2 OR 3/DAY)
  2. BRIMONIDINE [Concomitant]
     Active Substance: BRIMONIDINE TARTRATE
     Indication: GLAUCOMA
     Dosage: UNK
     Dates: start: 2007
  3. TRAVATAN [Concomitant]
     Active Substance: TRAVOPROST
     Indication: GLAUCOMA
     Dosage: UNK
     Dates: start: 2007
  4. WARFARIN [Concomitant]
     Active Substance: WARFARIN
     Dosage: UNK, DAILY (3-4 MG )
     Dates: start: 1997
  5. VITAMIN D3 [Concomitant]
     Active Substance: CHOLECALCIFEROL
     Dosage: 1000 DF, DAILY (D3-1000 -10 DAILY)
  6. AROMASIN [Suspect]
     Active Substance: EXEMESTANE
     Indication: BREAST CONSERVING SURGERY
  7. LOVASTATIN. [Concomitant]
     Active Substance: LOVASTATIN
     Indication: HYPERTENSION
     Dosage: 40 MG, DAILY (NIGHT)
     Dates: start: 2000
  8. CALCIUM [Concomitant]
     Active Substance: CALCIUM
     Dosage: 1200 MG, DAILY
  9. AROMASIN [Suspect]
     Active Substance: EXEMESTANE
     Indication: BREAST CANCER
     Dosage: 25 MG, 1X/DAY
     Dates: start: 201102, end: 20151224
  10. LOSARTAN. [Concomitant]
     Active Substance: LOSARTAN
     Indication: HYPERTENSION
     Dosage: 25 MG, 1X/DAY (NIGHT)
     Dates: start: 2010

REACTIONS (2)
  - Breast cancer [Not Recovered/Not Resolved]
  - Disease progression [Not Recovered/Not Resolved]

NARRATIVE: CASE EVENT DATE: 201512
